FAERS Safety Report 12384896 (Version 1)
Quarter: 2016Q2

REPORT INFORMATION
  Report Type: Spontaneous
  Country: US (occurrence: None)
  Receive Date: 20160518
  Receipt Date: 20160518
  Transmission Date: 20160815
  Serious: Yes (Hospitalization)
  Sender: FDA-Public Use
  Company Number: None

PATIENT
  Age: 83 Year
  Sex: Female
  Weight: 70.76 kg

DRUGS (4)
  1. OXYBUTYNIN (DITROPAN) [Concomitant]
  2. SINEMET [Concomitant]
     Active Substance: CARBIDOPA\LEVODOPA
  3. MULTIPLE VITAMINS (MULTI-VITAMIN) [Concomitant]
  4. EXELON [Suspect]
     Active Substance: RIVASTIGMINE TARTRATE
     Indication: MEMORY IMPAIRMENT
     Route: 062
     Dates: start: 20160416, end: 20160514

REACTIONS (2)
  - Transient ischaemic attack [None]
  - Hypertension [None]

NARRATIVE: CASE EVENT DATE: 20160513
